FAERS Safety Report 5912188-1 (Version None)
Quarter: 2008Q4

REPORT INFORMATION
  Report Type: 
  Country: None (occurrence: None)
  Receive Date: 20081008
  Receipt Date: 20080930
  Transmission Date: 20090506
  Serious: Yes (Other)
  Sender: FDA-Public Use
  Company Number: GB-TEVA-178257ISR

PATIENT
  Age: 45 Year
  Sex: Male

DRUGS (4)
  1. AMLODIPINE [Suspect]
  2. METOPROLOL TARTRATE [Suspect]
  3. ACETYLSALICYLIC ACID SRT [Suspect]
  4. AVANDAMET [Suspect]

REACTIONS (2)
  - DIABETES MELLITUS INADEQUATE CONTROL [None]
  - DRUG INEFFECTIVE [None]
